FAERS Safety Report 5788101-7 (Version None)
Quarter: 2008Q2

REPORT INFORMATION
  Report Type: 
  Country: None (occurrence: None)
  Receive Date: 20080625
  Receipt Date: 20080620
  Transmission Date: 20081010
  Serious: Yes (Other)
  Sender: FDA-Public Use
  Company Number: TR-BOEHRINGER INGELHEIM GMBH, GERMANY-2008-BP-09622RO

PATIENT
  Age: 62 Year
  Sex: Female

DRUGS (3)
  1. METHOTREXATE [Suspect]
     Indication: RHEUMATOID ARTHRITIS
     Dates: start: 20030101
  2. SULFASALAZINE [Suspect]
     Indication: RHEUMATOID ARTHRITIS
     Dates: start: 20010101
  3. LEFLUNOMIDE [Suspect]
     Indication: RHEUMATOID ARTHRITIS
     Dates: start: 20040101

REACTIONS (3)
  - DRUG INEFFECTIVE [None]
  - HEPATITIS C POSITIVE [None]
  - LABORATORY TEST ABNORMAL [None]
